FAERS Safety Report 9026554 (Version 3)
Quarter: 2013Q2

REPORT INFORMATION
  Report Type: Spontaneous
  Country: US (occurrence: US)
  Receive Date: 20130123
  Receipt Date: 20130415
  Transmission Date: 20140414
  Serious: Yes (Death)
  Sender: FDA-Public Use
  Company Number: US-009507513-1301USA008832

PATIENT
  Age: 59 Year
  Sex: Female

DRUGS (3)
  1. TEMODAR [Suspect]
     Indication: BRAIN CANCER METASTATIC
     Dosage: 180 MG, 100 MG AND TWO 5 MG TABLETS TO TOTAL A 290 MG DOSE, ONCE DAILY
     Route: 048
     Dates: start: 20111005
  2. ZOFRAN [Concomitant]
  3. PLAQUENIL [Concomitant]

REACTIONS (3)
  - Disease progression [Fatal]
  - Nausea [Not Recovered/Not Resolved]
  - Product taste abnormal [Not Recovered/Not Resolved]
